FAERS Safety Report 4474754-2 (Version None)
Quarter: 2004Q4

REPORT INFORMATION
  Report Type: 
  Country: None (occurrence: None)
  Receive Date: 20041014
  Receipt Date: 20040923
  Transmission Date: 20050328
  Serious: Yes (Hospitalization)
  Sender: FDA-Public Use
  Company Number: FRWYE059623SEP04

PATIENT
  Age: 55 Year
  Sex: Male

DRUGS (2)
  1. ENBREL [Suspect]
     Indication: RHEUMATOID ARTHRITIS
     Route: 058
     Dates: start: 20030809, end: 20040101
  2. CORTANCYL [Suspect]
     Route: 048
     Dates: start: 19960815

REACTIONS (5)
  - INTERVERTEBRAL DISCITIS [None]
  - PARAPLEGIA [None]
  - SEPSIS [None]
  - SEPTIC SHOCK [None]
  - SPONDYLITIS [None]
